FAERS Safety Report 14585836 (Version 2)
Quarter: 2018Q2

REPORT INFORMATION
  Report Type: Spontaneous
  Country: US (occurrence: US)
  Receive Date: 20180301
  Receipt Date: 20180425
  Transmission Date: 20180711
  Serious: No
  Sender: FDA-Public Use
  Company Number: US-TEVA-2018-US-863620

PATIENT
  Sex: Male

DRUGS (1)
  1. FENTANYL. [Suspect]
     Active Substance: FENTANYL
     Indication: PAIN
     Dosage: DOSE STRENGTH:  50MCG 5
     Dates: start: 2012

REACTIONS (4)
  - Skin reaction [Unknown]
  - Dizziness [Recovered/Resolved]
  - Product adhesion issue [Unknown]
  - Product physical issue [Unknown]
